FAERS Safety Report 9183358 (Version 1)
Quarter: 2012Q4

REPORT INFORMATION
  Report Type: 
  Country: FR (occurrence: FR)
  Receive Date: 20121030
  Receipt Date: 20121030
  Transmission Date: 20130627
  Serious: Yes (Other)
  Sender: FDA-Public Use
  Company Number: FR-JNJFOC-20121015648

PATIENT
  Age: 51 Year
  Sex: Male

DRUGS (3)
  1. SUDAFED [Suspect]
     Route: 048
  2. SUDAFED [Suspect]
     Indication: DRUG ABUSE
     Route: 048
  3. CLOMIPRAMINE HCL [Concomitant]
     Route: 065

REACTIONS (6)
  - Drug abuse [Unknown]
  - Drug dependence [Unknown]
  - Therapeutic response unexpected [Unknown]
  - Insomnia [Unknown]
  - Feeling abnormal [Unknown]
  - Off label use [Unknown]
